FAERS Safety Report 7802621-2 (Version None)
Quarter: 2011Q4

REPORT INFORMATION
  Report Type: 
  Country: None (occurrence: None)
  Receive Date: 20111005
  Receipt Date: 20110920
  Transmission Date: 20120403
  Serious: Yes (Hospitalization)
  Sender: FDA-Public Use
  Company Number: DSA_47715_2011

PATIENT
  Age: 78 Year
  Sex: Female

DRUGS (6)
  1. ACETAMINOPHEN [Concomitant]
  2. ENALAPRIL MALEATE AND HYDROCHLOROTHIAZIDE [Suspect]
     Indication: HYPERTENSION
     Dosage: 20-12.5 MG DAILY, ORAL
     Route: 048
     Dates: start: 20110429, end: 20110531
  3. ENOXAPARIN SODIUM [Concomitant]
  4. ALMAX [Concomitant]
  5. ZETIA [Concomitant]
  6. NOLOTIL [Concomitant]

REACTIONS (6)
  - VOMITING [None]
  - MUSCULOSKELETAL CHEST PAIN [None]
  - GENERAL PHYSICAL HEALTH DETERIORATION [None]
  - ASTHENIA [None]
  - HYPONATRAEMIA [None]
  - NAUSEA [None]
